FAERS Safety Report 8829166 (Version 1)
Quarter: 2012Q4

REPORT INFORMATION
  Report Type: Spontaneous
  Country: US (occurrence: None)
  Receive Date: 20121005
  Receipt Date: 20121005
  Transmission Date: 20130627
  Serious: No
  Sender: FDA-Public Use
  Company Number: None

PATIENT
  Age: 57 Year
  Sex: Male
  Weight: 95.26 kg

DRUGS (2)
  1. DULOXETINE HYDROCHLORIDE [Suspect]
     Dates: start: 20120801, end: 20120815
  2. VENLAFAXINE HYDROCHLORIDE [Suspect]
     Dates: start: 20120201, end: 20120205

REACTIONS (7)
  - Eye movement disorder [None]
  - Swollen tongue [None]
  - Pharyngeal oedema [None]
  - Muscle twitching [None]
  - Trance [None]
  - Feeling abnormal [None]
  - Drug effect decreased [None]
